FAERS Safety Report 24989335 (Version 1)
Quarter: 2025Q1

REPORT INFORMATION
  Report Type: Spontaneous
  Country: FR (occurrence: FR)
  Receive Date: 20250220
  Receipt Date: 20250220
  Transmission Date: 20250408
  Serious: Yes (Other)
  Sender: BOEHRINGER INGELHEIM
  Company Number: None

PATIENT
  Age: 60 Year
  Sex: Male
  Weight: 120 kg

DRUGS (2)
  1. ATROVENT [Suspect]
     Active Substance: IPRATROPIUM BROMIDE
     Indication: Medication error
     Dates: start: 20231229, end: 20231229
  2. BORIC ACID\SODIUM BORATE [Suspect]
     Active Substance: BORIC ACID\SODIUM BORATE
     Indication: Dry eye

REACTIONS (5)
  - Thermal burns of eye [Recovered/Resolved]
  - Mydriasis [Recovered/Resolved]
  - Photophobia [Recovered/Resolved]
  - Wrong product administered [Recovered/Resolved]
  - Product confusion [Recovered/Resolved]

NARRATIVE: CASE EVENT DATE: 20231229
